FAERS Safety Report 8606202-2 (Version None)
Quarter: 2012Q3

REPORT INFORMATION
  Report Type: 
  Country: None (occurrence: None)
  Receive Date: 20120820
  Receipt Date: 20120813
  Transmission Date: 20120928
  Serious: Yes (Hospitalization)
  Sender: FDA-Public Use
  Company Number: DE-ACTELION-A-US2012-70050

PATIENT
  Age: 74 Year
  Sex: Female

DRUGS (1)
  1. VENTAVIS [Suspect]
     Indication: PULMONARY HYPERTENSION
     Route: 055

REACTIONS (5)
  - BREAST PAIN [None]
  - CYANOSIS [None]
  - DIZZINESS [None]
  - SOMNOLENCE [None]
  - ASTHENIA [None]
